FAERS Safety Report 23951601 (Version 1)
Quarter: 2024Q2

REPORT INFORMATION
  Report Type: Spontaneous
  Country: CN (occurrence: CN)
  Receive Date: 20240607
  Receipt Date: 20240607
  Transmission Date: 20240716
  Serious: Yes (Other)
  Sender: FDA-Public Use
  Company Number: CN-009507513-2406CHN001338

PATIENT
  Age: 55 Year
  Sex: Female

DRUGS (1)
  1. CILASTATIN SODIUM\IMIPENEM [Suspect]
     Active Substance: CILASTATIN SODIUM\IMIPENEM
     Indication: Anti-infective therapy
     Dosage: 1 GRAM, BID
     Route: 041
     Dates: start: 20240427, end: 20240501

REACTIONS (5)
  - Seizure [Recovering/Resolving]
  - Craniocerebral injury [Unknown]
  - Oxygen saturation decreased [Recovering/Resolving]
  - Heart rate decreased [Recovering/Resolving]
  - Incorrect dosage administered [Unknown]

NARRATIVE: CASE EVENT DATE: 20240427
